FAERS Safety Report 7726422-9 (Version None)
Quarter: 2011Q3

REPORT INFORMATION
  Report Type: 
  Country: None (occurrence: None)
  Receive Date: 20110831
  Receipt Date: 20110815
  Transmission Date: 20111222
  Serious: Yes (Hospitalization)
  Sender: FDA-Public Use
  Company Number: METC20110002

PATIENT
  Age: 42 Year
  Sex: Female

DRUGS (1)
  1. METHOCARBAMOL [Suspect]
     Indication: PAIN IN EXTREMITY
     Dosage: 1GR/10ML, ONCE, INTRAMUSCULAR

REACTIONS (15)
  - HENOCH-SCHONLEIN PURPURA [None]
  - PURPURA [None]
  - GASTROINTESTINAL TRACT MUCOSAL DISCOLOURATION [None]
  - ERYTHEMA [None]
  - OEDEMA [None]
  - HEART RATE INCREASED [None]
  - HAEMOGLOBIN DECREASED [None]
  - BLOOD PRESSURE ABNORMAL [None]
  - ABDOMINAL PAIN [None]
  - RECTAL HAEMORRHAGE [None]
  - RESPIRATORY RATE INCREASED [None]
  - GASTROINTESTINAL OEDEMA [None]
  - LEUKOCYTOCLASTIC VASCULITIS [None]
  - BODY TEMPERATURE INCREASED [None]
  - ABNORMAL FAECES [None]
